FAERS Safety Report 12819750 (Version 1)
Quarter: 2016Q4

REPORT INFORMATION
  Report Type: Report from Study
  Country: US (occurrence: US)
  Receive Date: 20161006
  Receipt Date: 20161006
  Transmission Date: 20170207
  Serious: No
  Sender: FDA-Public Use
  Company Number: US-AMGEN-USASL2016013644

PATIENT
  Age: 62 Year
  Sex: Female

DRUGS (1)
  1. PROLIA [Suspect]
     Active Substance: DENOSUMAB
     Indication: OSTEOPOROSIS POSTMENOPAUSAL
     Dosage: UNK
     Route: 065
     Dates: start: 2014

REACTIONS (9)
  - Pain [Unknown]
  - Laceration [Unknown]
  - Visual acuity reduced [Unknown]
  - Myalgia [Unknown]
  - Back pain [Unknown]
  - Fall [Unknown]
  - Bone density abnormal [Unknown]
  - Skin striae [Unknown]
  - Contusion [Unknown]

NARRATIVE: CASE EVENT DATE: 201605
